FAERS Safety Report 17276712 (Version 1)
Quarter: 2020Q1

REPORT INFORMATION
  Report Type: Spontaneous
  Country: GB (occurrence: GB)
  Receive Date: 20200116
  Receipt Date: 20200116
  Transmission Date: 20200409
  Serious: Yes (Hospitalization)
  Sender: FDA-Public Use
  Company Number: GB-TEVA-2020-GB-1167691

PATIENT
  Age: 70 Year
  Sex: Male

DRUGS (17)
  1. HUMULIN M3 [Concomitant]
     Active Substance: INSULIN HUMAN
  2. BETAHISTINE [Concomitant]
     Active Substance: BETAHISTINE
  3. AMLODIPINE [Suspect]
     Active Substance: AMLODIPINE BESYLATE
     Indication: HYPERTENSION
     Dosage: 5MG
     Route: 048
  4. METFORMIN [Concomitant]
     Active Substance: METFORMIN HYDROCHLORIDE
  5. LINAGLIPTIN [Concomitant]
     Active Substance: LINAGLIPTIN
  6. MIRTAZAPINE. [Concomitant]
     Active Substance: MIRTAZAPINE
  7. PARACETAMOL [Concomitant]
     Active Substance: ACETAMINOPHEN
  8. ISOSORBIDE DINITRATE. [Concomitant]
     Active Substance: ISOSORBIDE DINITRATE
  9. LACTULOSE. [Concomitant]
     Active Substance: LACTULOSE
  10. SIMVASTATIN. [Concomitant]
     Active Substance: SIMVASTATIN
  11. LOSARTAN. [Concomitant]
     Active Substance: LOSARTAN
  12. GLUCOSE [Concomitant]
     Active Substance: DEXTROSE
  13. GLYCERYL TRINITRATE [Concomitant]
     Active Substance: NITROGLYCERIN
  14. LANSOPRAZOLE. [Concomitant]
     Active Substance: LANSOPRAZOLE
  15. BISOPROLOL [Concomitant]
     Active Substance: BISOPROLOL
  16. CYANOCOBALAMIN. [Concomitant]
     Active Substance: CYANOCOBALAMIN
  17. CLOPIDOGREL [Concomitant]
     Active Substance: CLOPIDOGREL BISULFATE

REACTIONS (1)
  - Urinary retention [Recovering/Resolving]
